FAERS Safety Report 5776670-2 (Version None)
Quarter: 2008Q2

REPORT INFORMATION
  Report Type: 
  Country: None (occurrence: None)
  Receive Date: 20080616
  Receipt Date: 20080610
  Transmission Date: 20081010
  Serious: Yes (Hospitalization)
  Sender: FDA-Public Use
  Company Number: 028854

PATIENT
  Age: 53 Year
  Sex: Male
  Weight: 83.1 kg

DRUGS (5)
  1. TREXALL [Suspect]
     Dosage: 15 MG, 1/WEEK, ORAL
     Route: 048
     Dates: start: 19980101, end: 20080416
  2. ENBREL [Suspect]
     Indication: PSORIASIS
     Dosage: 50 MG, 2/WEEK, SUBCUTANEOUS
     Route: 058
     Dates: start: 20080311, end: 20080418
  3. FOLIC ACID [Concomitant]
  4. PANTOPRAZOLE SODIUM [Concomitant]
  5. NAPROXEN [Concomitant]

REACTIONS (8)
  - ACUTE MYOCARDIAL INFARCTION [None]
  - JOINT INJURY [None]
  - NECROTISING FASCIITIS STREPTOCOCCAL [None]
  - PURULENCE [None]
  - RENAL FAILURE [None]
  - SEPTIC SHOCK [None]
  - SKIN LACERATION [None]
  - WOUND [None]
